FAERS Safety Report 6396612-9 (Version None)
Quarter: 2009Q4

REPORT INFORMATION
  Report Type: 
  Country: None (occurrence: None)
  Receive Date: 20091012
  Receipt Date: 20090805
  Transmission Date: 20100525
  Serious: No
  Sender: FDA-Public Use
  Company Number: US-ASTRAZENECA-2009SE06897

PATIENT
  Sex: Female

DRUGS (2)
  1. SYMBICORT [Suspect]
     Indication: COUGH
     Dosage: 160, 2 PUFFS
     Route: 055
  2. NASONEX [Concomitant]

REACTIONS (1)
  - DENTAL CARIES [None]
